FAERS Safety Report 21137017 (Version 1)
Quarter: 2022Q3

REPORT INFORMATION
  Report Type: Spontaneous
  Country: DE (occurrence: DE)
  Receive Date: 20220727
  Receipt Date: 20220727
  Transmission Date: 20221026
  Serious: Yes (Hospitalization, Other)
  Sender: FDA-Public Use
  Company Number: DE-NOVARTISPH-NVSC2022DE136938

PATIENT
  Age: 64 Year
  Sex: Female

DRUGS (2)
  1. ZOLPIDEM [Suspect]
     Active Substance: ZOLPIDEM TARTRATE
     Indication: Sleep disorder
     Dosage: 5 MG, QD (60 TABLETS)
     Route: 065
  2. DIAZEPAM [Suspect]
     Active Substance: DIAZEPAM
     Indication: Product used for unknown indication
     Dosage: UNK (DOSAGE OF 30 MG BELOW THE EQUIVALENT DOSE, WHICH WAS WELL TOLERATED)
     Route: 065

REACTIONS (10)
  - Drug dependence [Unknown]
  - Emotional poverty [Unknown]
  - Tearfulness [Unknown]
  - Asthenia [Unknown]
  - Anxiety [Unknown]
  - Performance fear [Unknown]
  - Disturbance in attention [Unknown]
  - Insomnia [Unknown]
  - Depressive symptom [Unknown]
  - Cognitive disorder [Unknown]
